FAERS Safety Report 8916915 (Version 1)
Quarter: 2012Q4

REPORT INFORMATION
  Report Type: 
  Country: NL (occurrence: NL)
  Receive Date: 20121120
  Receipt Date: 20121120
  Transmission Date: 20130627
  Serious: Yes (Hospitalization)
  Sender: FDA-Public Use
  Company Number: NL-AMGEN-NLDSP2012073278

PATIENT
  Age: 79 Year
  Sex: Female

DRUGS (13)
  1. NEULASTA [Suspect]
     Indication: PRODUCT USED FOR UNKNOWN INDICATION
     Dosage: 6 mg, UNK
     Dates: start: 20121105
  2. EMEND                              /01627301/ [Concomitant]
     Dosage: UNK
  3. DEXAMETHASON                       /00016001/ [Concomitant]
     Dosage: UNK
  4. POTASSIUM [Concomitant]
     Dosage: UNK
  5. MAGNESIUM [Concomitant]
     Dosage: UNK
  6. PANTOZOL [Concomitant]
     Dosage: UNK
  7. OXYCONTIN [Concomitant]
     Dosage: UNK
  8. LIPITOR [Concomitant]
     Dosage: UNK
  9. HYDROCHLOORTHIAZIDE [Concomitant]
     Dosage: UNK
  10. ASCAL                              /00002702/ [Concomitant]
  11. THYRAX                             /00068001/ [Concomitant]
     Dosage: UNK
  12. SPIRIVA [Concomitant]
     Dosage: UNK
  13. VENTOLIN                           /00139501/ [Concomitant]
     Dosage: UNK

REACTIONS (2)
  - Leukopenia [Unknown]
  - Pyrexia [Unknown]
